FAERS Safety Report 21784573 (Version 1)
Quarter: 2022Q4

REPORT INFORMATION
  Report Type: Report from Study
  Country: HK (occurrence: HK)
  Receive Date: 20221227
  Receipt Date: 20221227
  Transmission Date: 20230112
  Serious: Yes (Death, Hospitalization)
  Sender: FDA-Public Use
  Company Number: HK-AMGEN-USACT2022219688

PATIENT
  Age: 89 Year
  Sex: Female
  Weight: 56.4 kg

DRUGS (13)
  1. DENOSUMAB [Suspect]
     Active Substance: DENOSUMAB
     Indication: Osteoporosis
     Dosage: 60 MILLIGRAM, Q6MO
     Route: 058
     Dates: start: 20210302, end: 20220525
  2. GLUCOPHAGE [Concomitant]
     Active Substance: METFORMIN HYDROCHLORIDE
     Dosage: 500 MILLIGRAM, BID
     Route: 048
     Dates: start: 20221104
  3. MELATONIN [Concomitant]
     Active Substance: MELATONIN
     Dosage: 3 MILLIGRAM, QD, AT BEDTIME
     Route: 048
     Dates: start: 20221104
  4. HYPROMELLOSES [Concomitant]
     Active Substance: HYPROMELLOSES
     Dosage: 1 DROP, AS NECESSARY
     Route: 047
     Dates: start: 20221104
  5. GLIPIZIDE [Concomitant]
     Active Substance: GLIPIZIDE
     Dosage: 5 MILLIGRAM, QD
     Route: 048
     Dates: start: 20221104
  6. SYNALAR [Concomitant]
     Active Substance: FLUOCINOLONE ACETONIDE
     Dosage: 0.005 PERCENT, AS NECESSARY
     Route: 061
     Dates: start: 20221104
  7. FAMOTIDINE [Concomitant]
     Active Substance: FAMOTIDINE
     Dosage: 40 MILLIGRAM, BID
     Route: 048
     Dates: start: 20221104
  8. EURAX [Concomitant]
     Active Substance: CROTAMITON
     Dosage: 10 PERCENT, AS NECESSARY
     Route: 061
     Dates: start: 20221104
  9. VITAMIN D3 [Concomitant]
     Active Substance: CHOLECALCIFEROL
     Dosage: 1000 INTERNATIONAL UNIT, QD
     Route: 048
     Dates: start: 20221104
  10. BISOPROLOL FUMARATE [Concomitant]
     Active Substance: BISOPROLOL FUMARATE
     Dosage: 1.25 MILLIGRAM, QD
     Route: 048
     Dates: start: 20221104
  11. MINERALS\VITAMINS [Concomitant]
     Active Substance: MINERALS\VITAMINS
     Dosage: 1 TABLET, BID
     Route: 048
     Dates: start: 20221104
  12. APIXABAN [Concomitant]
     Active Substance: APIXABAN
     Dosage: 2.5 MILLIGRAM, BID
     Route: 048
     Dates: start: 20221104
  13. AMLODIPINE BESYLATE [Concomitant]
     Active Substance: AMLODIPINE BESYLATE
     Dosage: 5 MILLIGRAM, BID
     Route: 048
     Dates: start: 20221104

REACTIONS (1)
  - Lower respiratory tract infection [Fatal]

NARRATIVE: CASE EVENT DATE: 20221201
